FAERS Safety Report 10199187 (Version 5)
Quarter: 2015Q1

REPORT INFORMATION
  Report Type: Spontaneous
  Country: US (occurrence: US)
  Receive Date: 20140527
  Receipt Date: 20150302
  Transmission Date: 20150720
  Serious: Yes (Other)
  Sender: FDA-Public Use
  Company Number: US-009507513-1405USA009204

PATIENT
  Sex: Male

DRUGS (1)
  1. PROPECIA [Suspect]
     Active Substance: FINASTERIDE
     Indication: ANDROGENETIC ALOPECIA
     Dosage: 1 MG, UNK
     Route: 048
     Dates: start: 19980723, end: 20051121

REACTIONS (33)
  - Sleep apnoea syndrome [Unknown]
  - Sciatica [Unknown]
  - Back pain [Unknown]
  - Glucose tolerance impaired [Unknown]
  - Testicular cyst [Unknown]
  - Erectile dysfunction [Not Recovered/Not Resolved]
  - Hypertension [Unknown]
  - Allergic sinusitis [Unknown]
  - Prostatitis [Unknown]
  - Genital herpes [Unknown]
  - Sexual dysfunction [Not Recovered/Not Resolved]
  - Cerebrovascular accident [Unknown]
  - Benign prostatic hyperplasia [Unknown]
  - Haemorrhoids [Unknown]
  - Epididymal cyst [Unknown]
  - Hyperlipidaemia [Unknown]
  - Arthritis [Unknown]
  - Dermatitis [Unknown]
  - Barrett^s oesophagus [Unknown]
  - Hypogonadism [Unknown]
  - Gastrointestinal disorder [Unknown]
  - Psoriasis [Unknown]
  - Dihydrotestosterone decreased [Unknown]
  - Irritable bowel syndrome [Unknown]
  - Blood testosterone decreased [Unknown]
  - Intervertebral disc protrusion [Unknown]
  - Sensory loss [Unknown]
  - Gastrooesophageal reflux disease [Unknown]
  - Eczema [Unknown]
  - Varicocele [Unknown]
  - Anhidrosis [Unknown]
  - Depression [Unknown]
  - Loss of libido [Unknown]

NARRATIVE: CASE EVENT DATE: 200105
